FAERS Safety Report 6594529-8 (Version None)
Quarter: 2010Q1

REPORT INFORMATION
  Report Type: 
  Country: None (occurrence: None)
  Receive Date: 20100222
  Receipt Date: 20100209
  Transmission Date: 20100710
  Serious: Yes (Hospitalization)
  Sender: FDA-Public Use
  Company Number: PHHY2010FR07213

PATIENT
  Age: 76 Year
  Sex: Male

DRUGS (4)
  1. ZOMETA [Suspect]
     Indication: METASTASES TO BONE
     Dosage: 1 DF(ONE INJECTION MONTHLY), QMO
     Route: 042
     Dates: start: 20090512, end: 20090914
  2. TAXOTERE [Suspect]
     Indication: METASTASES TO BONE
     Dosage: 7 DF, TIW
     Route: 042
     Dates: start: 20090512, end: 20090914
  3. NEULASTA [Suspect]
     Indication: METASTASES TO BONE
     Dosage: UNK
     Dates: start: 20090512, end: 20090914
  4. EPREX [Suspect]
     Dosage: UNK
     Dates: start: 20090803, end: 20090824

REACTIONS (9)
  - BLOOD PRESSURE DECREASED [None]
  - BREATH SOUNDS ABNORMAL [None]
  - BRONCHOALVEOLAR LAVAGE ABNORMAL [None]
  - COUGH [None]
  - DYSPNOEA EXERTIONAL [None]
  - INTERSTITIAL LUNG DISEASE [None]
  - OEDEMA PERIPHERAL [None]
  - PO2 DECREASED [None]
  - PULMONARY FUNCTION TEST ABNORMAL [None]
